FAERS Safety Report 8411829-7 (Version None)
Quarter: 2012Q2

REPORT INFORMATION
  Report Type: 
  Country: None (occurrence: None)
  Receive Date: 20120605
  Receipt Date: 20120516
  Transmission Date: 20120825
  Serious: No
  Sender: FDA-Public Use
  Company Number: US-AMGEN-USASP2012019291

PATIENT
  Age: 63 Year
  Sex: Female

DRUGS (1)
  1. ENBREL [Suspect]
     Indication: RHEUMATOID ARTHRITIS
     Dosage: 50 MG, QWK
     Dates: start: 20120225

REACTIONS (17)
  - INSOMNIA [None]
  - SINUS CONGESTION [None]
  - INJECTION SITE ERYTHEMA [None]
  - DIZZINESS [None]
  - DIABETES MELLITUS [None]
  - BLOOD GLUCOSE INCREASED [None]
  - FATIGUE [None]
  - ACTIVITIES OF DAILY LIVING IMPAIRED [None]
  - HYPERHIDROSIS [None]
  - VOMITING [None]
  - BLOOD GLUCOSE FLUCTUATION [None]
  - INJECTION SITE RASH [None]
  - BLOOD GLUCOSE DECREASED [None]
  - INJECTION SITE PRURITUS [None]
  - NYSTAGMUS [None]
  - RHEUMATOID ARTHRITIS [None]
  - DRUG INEFFECTIVE [None]
